FAERS Safety Report 5649622-0 (Version None)
Quarter: 2008Q1

REPORT INFORMATION
  Report Type: 
  Country: None (occurrence: None)
  Receive Date: 20080304
  Receipt Date: 20080222
  Transmission Date: 20080703
  Serious: Yes (Life-Threatening, Hospitalization)
  Sender: FDA-Public Use
  Company Number: US-PFIZER INC-2008003937

PATIENT
  Sex: Male
  Weight: 103.9 kg

DRUGS (17)
  1. MARAVIROC [Suspect]
     Route: 048
  2. GLUCOPHAGE [Concomitant]
     Route: 048
  3. NIACIN [Concomitant]
     Route: 048
     Dates: start: 20051121
  4. TYLENOL [Concomitant]
     Route: 048
  5. POTASSIUM CHLORIDE [Concomitant]
     Route: 048
     Dates: start: 19990101
  6. TRICOR [Concomitant]
     Route: 048
     Dates: start: 20060315
  7. ZETIA [Concomitant]
     Route: 048
     Dates: start: 20060713
  8. ACYCLOVIR [Concomitant]
     Route: 048
     Dates: start: 20070719
  9. PREVACID [Concomitant]
     Route: 048
     Dates: start: 20070827
  10. VICODIN [Concomitant]
     Route: 048
     Dates: start: 20071014
  11. FLEXERIL [Concomitant]
     Route: 048
     Dates: start: 20071217
  12. PROMETHAZINE HCL [Concomitant]
     Route: 048
     Dates: start: 20070507
  13. NORVIR [Concomitant]
     Route: 048
     Dates: start: 20071102
  14. INVIRASE [Concomitant]
     Route: 048
     Dates: start: 20071102
  15. TRUVADA [Concomitant]
     Route: 048
     Dates: start: 20051216
  16. LONOX [Concomitant]
     Route: 048
     Dates: start: 19990325
  17. ALBUTEROL [Concomitant]
     Route: 055
     Dates: start: 20071016, end: 20080114

REACTIONS (1)
  - LYMPHOMA [None]
